FAERS Safety Report 4478408-8 (Version None)
Quarter: 2004Q4

REPORT INFORMATION
  Report Type: 
  Country: None (occurrence: None)
  Receive Date: 20041019
  Receipt Date: 20040205
  Transmission Date: 20050328
  Serious: Yes (Death, Hospitalization)
  Sender: FDA-Public Use
  Company Number: 200410516JP

PATIENT
  Age: 78 Year
  Sex: Female
  Weight: 44.2 kg

DRUGS (6)
  1. ARAVA [Suspect]
     Indication: RHEUMATOID ARTHRITIS
     Route: 048
     Dates: start: 20031015, end: 20040107
  2. DRUGS FOR TREATMENT OF TUBERCULOSIS [Suspect]
     Indication: PULMONARY TUBERCULOSIS
     Dates: start: 20040101
  3. PREDONINE [Concomitant]
     Indication: RHEUMATOID ARTHRITIS
     Route: 048
  4. NEORAL [Concomitant]
     Indication: RHEUMATOID ARTHRITIS
     Route: 048
     Dates: end: 20031015
  5. SELBEX [Concomitant]
     Indication: ANTACID THERAPY
     Route: 048
     Dates: start: 20030820
  6. BENET [Concomitant]
     Indication: OSTEOPOROSIS
     Route: 048

REACTIONS (21)
  - ANOREXIA [None]
  - ASPARTATE AMINOTRANSFERASE INCREASED [None]
  - BLOOD ALBUMIN DECREASED [None]
  - BLOOD ALKALINE PHOSPHATASE INCREASED [None]
  - BLOOD BILIRUBIN INCREASED [None]
  - BLOOD GLUCOSE INCREASED [None]
  - BLOOD KETONE BODY PRESENT [None]
  - BLOOD LACTATE DEHYDROGENASE INCREASED [None]
  - BLOOD UREA INCREASED [None]
  - BLOOD URIC ACID INCREASED [None]
  - BRONCHITIS [None]
  - ERYTHEMA [None]
  - HAEMOGLOBIN DECREASED [None]
  - HEPATIC CYST [None]
  - INTERSTITIAL LUNG DISEASE [None]
  - LIVER DISORDER [None]
  - NEUTROPHIL PERCENTAGE INCREASED [None]
  - PNEUMONIA [None]
  - PULMONARY TUBERCULOSIS [None]
  - RHEUMATOID LUNG [None]
  - TINEA BLANCA [None]
